FAERS Safety Report 13569472 (Version 1)
Quarter: 2017Q2

REPORT INFORMATION
  Report Type: Report from Study
  Country: US (occurrence: US)
  Receive Date: 20170522
  Receipt Date: 20170522
  Transmission Date: 20170830
  Serious: Yes (Hospitalization)
  Sender: FDA-Public Use
  Company Number: US-NOVOPROD-545585

PATIENT
  Age: 25 Year
  Sex: Male
  Weight: 89.34 kg

DRUGS (1)
  1. NOVOLOG MIX 70/30 [Suspect]
     Active Substance: INSULIN ASPART
     Indication: TYPE 1 DIABETES MELLITUS
     Dosage: 50 U, BID (50 U IN AM 50 U AT NIGHT)
     Route: 058
     Dates: start: 201701

REACTIONS (2)
  - Diabetic ketoacidosis [Recovered/Resolved]
  - Dehydration [Recovered/Resolved]

NARRATIVE: CASE EVENT DATE: 20170430
